FAERS Safety Report 13545480 (Version 2)
Quarter: 2017Q3

REPORT INFORMATION
  Report Type: Spontaneous
  Country: US (occurrence: US)
  Receive Date: 20170515
  Receipt Date: 20170719
  Transmission Date: 20171127
  Serious: No
  Sender: FDA-Public Use
  Company Number: US-PFIZER INC-2017204566

PATIENT
  Age: 60 Year
  Sex: Female

DRUGS (1)
  1. XELJANZ [Suspect]
     Active Substance: TOFACITINIB CITRATE
     Dosage: 5 MG, 2X/DAY
     Route: 048

REACTIONS (16)
  - Muscle spasms [Not Recovered/Not Resolved]
  - Peripheral swelling [Unknown]
  - Nocturia [Unknown]
  - Dyspareunia [Unknown]
  - Hypertension [Unknown]
  - Arthralgia [Unknown]
  - Back pain [Unknown]
  - Asthma [Unknown]
  - Nervousness [Unknown]
  - Micturition urgency [Unknown]
  - Drug effect incomplete [Unknown]
  - Lipids abnormal [Unknown]
  - Therapeutic response unexpected [Unknown]
  - Energy increased [Unknown]
  - Wheezing [Unknown]
  - Arthritis [Unknown]

NARRATIVE: CASE EVENT DATE: 20170605
